FAERS Safety Report 6012697-3 (Version None)
Quarter: 2008Q4

REPORT INFORMATION
  Report Type: 
  Country: None (occurrence: None)
  Receive Date: 20081210
  Receipt Date: 20081125
  Transmission Date: 20090506
  Serious: Yes (Other)
  Sender: FDA-Public Use
  Company Number: M-08-512

PATIENT
  Age: 29 Year
  Sex: Female

DRUGS (2)
  1. ALBUMIN (HUMAN) [Suspect]
     Indication: MYASTHENIA GRAVIS
     Dosage: AS A REPLACEMENT FLUID OF A PLASMA EXCHANGE; (IV)
     Route: 042
     Dates: start: 19980801
  2. HEPARIN [Concomitant]

REACTIONS (2)
  - DEEP VEIN THROMBOSIS [None]
  - MYASTHENIA GRAVIS [None]
